FAERS Safety Report 7725958-4 (Version None)
Quarter: 2011Q3

REPORT INFORMATION
  Report Type: 
  Country: None (occurrence: None)
  Receive Date: 20110902
  Receipt Date: 20110822
  Transmission Date: 20111222
  Serious: Yes (Hospitalization)
  Sender: FDA-Public Use
  Company Number: US-ELI_LILLY_AND_COMPANY-US201011006451

PATIENT
  Sex: Male
  Weight: 51.247 kg

DRUGS (15)
  1. FOLIC ACID [Concomitant]
     Dosage: UNK, DAILY (1/D)
     Route: 065
  2. PREDNISONE [Concomitant]
     Dosage: UNK, DAILY (1/D)
     Route: 065
  3. OXYCODONE HCL [Concomitant]
     Dosage: 5 MG, DAILY (1/D)
     Route: 065
  4. HYDROXYCHLOROQUINE [Concomitant]
     Dosage: UNK, DAILY (1/D)
     Route: 065
  5. PANTOPRAZOLE [Concomitant]
  6. METHOTREXATE [Concomitant]
     Dosage: UNK, WEEKLY (1/W)
     Route: 065
  7. NEURONTIN [Concomitant]
     Dosage: UNK, DAILY (1/D)
     Route: 065
  8. OXYCONTIN [Concomitant]
     Dosage: 20 MG, DAILY (1/D)
     Route: 065
  9. LIPITOR [Concomitant]
     Dosage: UNK, DAILY (1/D)
     Route: 065
  10. FORTEO [Suspect]
     Indication: OSTEOPOROSIS
     Dosage: 20 UG, DAILY (1/D)
     Route: 065
  11. LISINOPRIL [Concomitant]
     Dosage: UNK, DAILY (1/D)
     Route: 065
  12. FORTEO [Suspect]
     Dosage: 20 UG, QD
     Route: 065
  13. METOPROLOL [Concomitant]
     Dosage: UNK, DAILY (1/D)
     Route: 065
  14. NEXIUM [Concomitant]
     Dosage: UNK, DAILY (1/D)
     Route: 065
  15. PLAQUENIL [Concomitant]

REACTIONS (6)
  - RENAL FAILURE [None]
  - BLOOD CALCIUM INCREASED [None]
  - PNEUMONIA PRIMARY ATYPICAL [None]
  - HYPOVOLAEMIA [None]
  - SYNCOPE [None]
  - DEHYDRATION [None]
